FAERS Safety Report 25333420 (Version 1)
Quarter: 2025Q2

REPORT INFORMATION
  Report Type: Report from Study
  Country: TH (occurrence: TH)
  Receive Date: 20250520
  Receipt Date: 20250520
  Transmission Date: 20250716
  Serious: Yes (Hospitalization, Other)
  Sender: ALEXION PHARMACEUTICALS
  Company Number: TH-AstraZeneca-CH-00871476A

PATIENT
  Age: 75 Year

DRUGS (1)
  1. OSIMERTINIB [Suspect]
     Active Substance: OSIMERTINIB
     Indication: Philadelphia chromosome positive
     Dosage: 80 MILLIGRAM, QD

REACTIONS (8)
  - Gastroenteritis [Unknown]
  - Acute kidney injury [Unknown]
  - Duodenal ulcer [Unknown]
  - Decreased activity [Unknown]
  - Metastases to spine [Unknown]
  - Metastases to bone [Unknown]
  - Compression fracture [Unknown]
  - Osteolysis [Unknown]
